FAERS Safety Report 9125702 (Version 3)
Quarter: 2013Q1

REPORT INFORMATION
  Report Type: Spontaneous
  Country: VE (occurrence: VE)
  Receive Date: 20130227
  Receipt Date: 20130322
  Transmission Date: 20140127
  Serious: Yes (Other)
  Sender: FDA-Public Use
  Company Number: VE-PFIZER INC-2013071808

PATIENT
  Age: 46 Year
  Sex: Female

DRUGS (3)
  1. NORVASC [Suspect]
     Indication: HYPERTENSION
     Dosage: 5 MG, 1X/DAY
     Route: 048
  2. BELOC [Concomitant]
     Indication: HYPERTENSION
     Dosage: 50 MG, 1X/DAY
     Route: 048
  3. HYPERLIPEN [Concomitant]
     Indication: HYPERCHOLESTEROLAEMIA
     Dosage: 100 MG, 1X/DAY
     Route: 048
     Dates: start: 201212, end: 201301

REACTIONS (4)
  - Plasma cell myeloma [Recovered/Resolved]
  - Uterine haemorrhage [Recovered/Resolved]
  - Hysterectomy [Recovered/Resolved]
  - Vaginal infection [Recovered/Resolved]
